FAERS Safety Report 6228301-5 (Version None)
Quarter: 2009Q2

REPORT INFORMATION
  Report Type: 
  Country: None (occurrence: None)
  Receive Date: 20090612
  Receipt Date: 20090609
  Transmission Date: 20091009
  Serious: Yes (Death, Other)
  Sender: FDA-Public Use
  Company Number: PHHY2009EC23008

PATIENT
  Age: 95 Year
  Sex: Male

DRUGS (4)
  1. TEGRETOL [Suspect]
     Indication: EPILEPSY
     Dosage: 400 MG, BID
     Route: 048
     Dates: start: 20080501
  2. LISINOPRIL [Concomitant]
     Indication: CARDIAC FAILURE
     Dosage: 20 MG, UNK
     Route: 048
  3. ZELMAC [Concomitant]
     Indication: CONSTIPATION
     Dosage: UNK
     Route: 048
     Dates: start: 20081001
  4. GLUCOFAGE [Concomitant]
     Indication: TYPE 2 DIABETES MELLITUS
     Dosage: 500 MG, UNK
     Route: 048

REACTIONS (4)
  - CEREBROVASCULAR ACCIDENT [None]
  - DYSPHAGIA [None]
  - MONOPLEGIA [None]
  - MYOCARDIAL INFARCTION [None]
